FAERS Safety Report 10526263 (Version 2)
Quarter: 2014Q4

REPORT INFORMATION
  Report Type: Spontaneous
  Country: US (occurrence: US)
  Receive Date: 20141018
  Receipt Date: 20141018
  Transmission Date: 20150528
  Serious: Yes (Other)
  Sender: FDA-Public Use
  Company Number: US-JNJFOC-20140713705

PATIENT
  Sex: Female

DRUGS (2)
  1. IMODIUM [Suspect]
     Active Substance: LOPERAMIDE HYDROCHLORIDE
     Route: 048
  2. IMODIUM [Suspect]
     Active Substance: LOPERAMIDE HYDROCHLORIDE
     Indication: FAECAL INCONTINENCE
     Dosage: AS NEEDED
     Route: 048

REACTIONS (4)
  - Presyncope [Unknown]
  - Wrong technique in drug usage process [Unknown]
  - Choking [Not Recovered/Not Resolved]
  - Product quality issue [Unknown]
